FAERS Safety Report 20340634 (Version 1)
Quarter: 2022Q1

REPORT INFORMATION
  Report Type: Spontaneous
  Country: DE (occurrence: DE)
  Receive Date: 20220117
  Receipt Date: 20220117
  Transmission Date: 20220423
  Serious: Yes (Other)
  Sender: FDA-Public Use
  Company Number: DE-BoehringerIngelheim-2022-BI-106673

PATIENT
  Age: 51 Year

DRUGS (2)
  1. AFATINIB [Suspect]
     Active Substance: AFATINIB
     Indication: EGFR gene mutation
     Dates: start: 201712, end: 202010
  2. AFATINIB [Suspect]
     Active Substance: AFATINIB
     Indication: Non-small cell lung cancer

REACTIONS (12)
  - Hilar lymphadenopathy [Unknown]
  - Metastases to central nervous system [Unknown]
  - Sarcoidosis [Unknown]
  - Hypertrophy [Unknown]
  - Atelectasis [Unknown]
  - Metastases to spine [Unknown]
  - Metastases to bone [Unknown]
  - Central nervous system lesion [Unknown]
  - EGFR gene mutation [Unknown]
  - Cerebral disorder [Unknown]
  - Diarrhoea [Unknown]
  - Transaminases increased [Unknown]

NARRATIVE: CASE EVENT DATE: 20171201
